FAERS Safety Report 9974110 (Version 3)
Quarter: 2014Q1

REPORT INFORMATION
  Report Type: Spontaneous
  Country: BR (occurrence: BR)
  Receive Date: 20140306
  Receipt Date: 20140328
  Transmission Date: 20141002
  Serious: Yes (Other)
  Sender: FDA-Public Use
  Company Number: BR-GLAXOSMITHKLINE-A1063757A

PATIENT
  Sex: Female

DRUGS (1)
  1. FLIXOTIDE [Suspect]
     Indication: ASTHMA
     Dosage: 2PUFF TWICE PER DAY
     Route: 055
     Dates: start: 20140218

REACTIONS (2)
  - Asthmatic crisis [Unknown]
  - Product quality issue [Unknown]
